FAERS Safety Report 10016442 (Version 3)
Quarter: 2014Q1

REPORT INFORMATION
  Report Type: Spontaneous
  Country: US (occurrence: US)
  Receive Date: 20140317
  Receipt Date: 20140326
  Transmission Date: 20141002
  Serious: Yes (Other)
  Sender: FDA-Public Use
  Company Number: CHPA2014US003995

PATIENT
  Age: 68 Year
  Sex: Female

DRUGS (2)
  1. CONTROL STEP 1 21MG [Suspect]
     Indication: SMOKING CESSATION THERAPY
     Dosage: 1 DF, QD
     Route: 062
     Dates: start: 201402, end: 20140302
  2. CONTROL STEP 1 21MG [Suspect]
     Dosage: 1 UNK, UNK
     Dates: start: 201403

REACTIONS (5)
  - Depression [Recovered/Resolved]
  - Nicotine dependence [Recovered/Resolved]
  - Abnormal dreams [Recovered/Resolved]
  - Insomnia [Recovered/Resolved]
  - Inappropriate schedule of drug administration [Unknown]
